FAERS Safety Report 8238870-1 (Version None)
Quarter: 2012Q1

REPORT INFORMATION
  Report Type: 
  Country: None (occurrence: None)
  Receive Date: 20120327
  Receipt Date: 20120323
  Transmission Date: 20120608
  Serious: Yes (Other)
  Sender: FDA-Public Use
  Company Number: CHPA2012US005394

PATIENT
  Sex: Female

DRUGS (3)
  1. EXCEDRIN PM CAPLETS [Suspect]
     Indication: INSOMNIA
     Dosage: 2 DF, QHS PRN
     Route: 048
  2. EXCEDRIN EXTRA STRENGTH TABLETS [Suspect]
     Indication: PAIN
     Dosage: 1-2 DF, PRN
     Route: 048
  3. EXCEDRIN EXTRA STRENGTH TABLETS [Suspect]
     Dosage: 2DF, BID
     Route: 048

REACTIONS (1)
  - HYPERSOMNIA [None]
